FAERS Safety Report 4723404-6 (Version None)
Quarter: 2005Q3

REPORT INFORMATION
  Report Type: 
  Country: None (occurrence: None)
  Receive Date: 20050721
  Receipt Date: 20050721
  Transmission Date: 20060218
  Serious: No
  Sender: FDA-Public Use
  Company Number: None

PATIENT
  Age: 79 Year
  Sex: Male
  Weight: 60.3284 kg

DRUGS (4)
  1. LEVOFLOXACIN [Suspect]
     Indication: SINUSITIS
     Dosage: ORAL
     Route: 048
     Dates: start: 20040918, end: 20040930
  2. DEXAMETHASONE [Concomitant]
  3. ATENOLOL [Concomitant]
  4. ALLOPURINOL [Concomitant]

REACTIONS (2)
  - PAIN IN EXTREMITY [None]
  - TENDON RUPTURE [None]
